FAERS Safety Report 4765563-5 (Version None)
Quarter: 2005Q3

REPORT INFORMATION
  Report Type: 
  Country: None (occurrence: None)
  Receive Date: 20050906
  Receipt Date: 20050826
  Transmission Date: 20060218
  Serious: Yes (Hospitalization)
  Sender: FDA-Public Use
  Company Number: 2005121245

PATIENT
  Age: 76 Year
  Sex: Male

DRUGS (6)
  1. AMLODIPINE [Suspect]
     Indication: HYPERTENSION
     Dosage: 10 MG (1 IN 1 D), ORAL
     Route: 048
     Dates: end: 20050610
  2. KENZEN (CANDESARTAN CILEXETIL) [Suspect]
     Indication: HYPERTENSION
     Dosage: 16 MG (1 IN 1 D), ORAL
     Route: 048
     Dates: end: 20050610
  3. FENOFIBRATE [Concomitant]
  4. PREVISCAN (FLUINDIONE) [Concomitant]
  5. POTASSIUM CHLORIDE [Concomitant]
  6. ALDALIX (FUROSEMIDE, SPIRONOLACTONE) [Concomitant]

REACTIONS (2)
  - HYPONATRAEMIA [None]
  - OEDEMA PERIPHERAL [None]
